FAERS Safety Report 12854614 (Version 1)
Quarter: 2016Q4

REPORT INFORMATION
  Report Type: Spontaneous
  Country: NL (occurrence: NL)
  Receive Date: 20161017
  Receipt Date: 20161017
  Transmission Date: 20170207
  Serious: Yes (Other)
  Sender: FDA-Public Use
  Company Number: NL-TEVA-702950ACC

PATIENT
  Age: 45 Year
  Sex: Male
  Weight: 110 kg

DRUGS (1)
  1. DULOXETINE CAPSULE MSR 30MG [Suspect]
     Active Substance: DULOXETINE
     Indication: DEPRESSION
     Dosage: 30 MILLIGRAM DAILY; 1 TIME PER DAY 1 PIECE(S)
     Route: 048
     Dates: start: 201502

REACTIONS (1)
  - Mastitis [Not Recovered/Not Resolved]

NARRATIVE: CASE EVENT DATE: 201608
